FAERS Safety Report 10611182 (Version 2)
Quarter: 2015Q1

REPORT INFORMATION
  Report Type: Spontaneous
  Country: FR (occurrence: FR)
  Receive Date: 20141126
  Receipt Date: 20150102
  Transmission Date: 20150720
  Serious: Yes (Death)
  Sender: FDA-Public Use
  Company Number: FR-FRI-1000072637

PATIENT
  Sex: Male

DRUGS (2)
  1. MILNACIPRAN [Suspect]
     Active Substance: MILNACIPRAN
     Indication: DEPRESSION
     Dosage: 2 CAPSULES DAILY
  2. BENZODIAZEPINES [Suspect]
     Active Substance: BENZODIAZEPINE

REACTIONS (2)
  - Completed suicide [Fatal]
  - Drug level increased [Fatal]

NARRATIVE: CASE EVENT DATE: 201301
